FAERS Safety Report 13463943 (Version 1)
Quarter: 2017Q2

REPORT INFORMATION
  Report Type: Spontaneous
  Country: US (occurrence: US)
  Receive Date: 20170420
  Receipt Date: 20170420
  Transmission Date: 20170830
  Serious: Yes (Other)
  Sender: FDA-Public Use
  Company Number: US-ROCHE-691757

PATIENT
  Age: 15 Year
  Sex: Male
  Weight: 54.4 kg

DRUGS (3)
  1. ACCUTANE [Suspect]
     Active Substance: ISOTRETINOIN
     Indication: ACNE
     Dosage: ON ALTERNATE DAYS
     Route: 065
     Dates: start: 20041130, end: 20050225
  2. SOTRET [Suspect]
     Active Substance: ISOTRETINOIN
     Indication: ACNE
     Route: 065
     Dates: start: 20041010, end: 20041101
  3. SOTRET [Suspect]
     Active Substance: ISOTRETINOIN
     Dosage: ON ALTERNATE DAYS
     Route: 065
     Dates: start: 20041101, end: 20041130

REACTIONS (4)
  - Inflammatory bowel disease [Unknown]
  - High density lipoprotein increased [Unknown]
  - Colitis ulcerative [Unknown]
  - Dry skin [Unknown]

NARRATIVE: CASE EVENT DATE: 20050104
